FAERS Safety Report 19422295 (Version 1)
Quarter: 2021Q2

REPORT INFORMATION
  Report Type: Spontaneous
  Country: US (occurrence: US)
  Receive Date: 20210616
  Receipt Date: 20210616
  Transmission Date: 20210717
  Serious: Yes (Death, Hospitalization)
  Sender: FDA-Public Use
  Company Number: None

PATIENT
  Age: 64 Year
  Sex: Male
  Weight: 86.9 kg

DRUGS (3)
  1. GEMCITABINE HYDROCHLORIDE. [Suspect]
     Active Substance: GEMCITABINE HYDROCHLORIDE
     Dates: end: 20210415
  2. CISPLATIN. [Suspect]
     Active Substance: CISPLATIN
     Dates: end: 20210415
  3. PACLITAXEL PROTEIN?BOUND PARTICLES (ALBUMIN?BOUND) [Suspect]
     Active Substance: PACLITAXEL
     Dates: end: 20210415

REACTIONS (3)
  - Disease progression [None]
  - Hypercalcaemia [None]
  - Small intestinal obstruction [None]

NARRATIVE: CASE EVENT DATE: 20210513
